FAERS Safety Report 9720113 (Version 1)
Quarter: 2013Q4

REPORT INFORMATION
  Report Type: Spontaneous
  Country: FR (occurrence: FR)
  Receive Date: 20131128
  Receipt Date: 20131128
  Transmission Date: 20140711
  Serious: Yes (Hospitalization)
  Sender: FDA-Public Use
  Company Number: FR-BRISTOL-MYERS SQUIBB COMPANY-19829837

PATIENT
  Age: 83 Year
  Sex: Female

DRUGS (8)
  1. GLUCOPHAGE [Suspect]
     Route: 048
     Dates: end: 20130409
  2. TAHOR [Suspect]
     Route: 048
     Dates: end: 20130409
  3. TAREG [Concomitant]
     Dosage: 80MG CAPS
     Route: 048
     Dates: start: 20130409
  4. OGAST [Concomitant]
     Route: 048
     Dates: start: 20130409
  5. CARDENSIEL [Concomitant]
  6. LASILIX [Concomitant]
  7. DIFFU-K [Concomitant]
  8. COUMADIN [Concomitant]

REACTIONS (1)
  - Hepatitis acute [Recovered/Resolved]
